FAERS Safety Report 22182197 (Version 3)
Quarter: 2023Q2

REPORT INFORMATION
  Report Type: Report from Study
  Country: CN (occurrence: CN)
  Receive Date: 20230406
  Receipt Date: 20230424
  Transmission Date: 20230722
  Serious: Yes (Hospitalization, Other)
  Sender: FDA-Public Use
  Company Number: CN-TAKEDA-2023TUS034501

PATIENT
  Age: 66 Year
  Sex: Female
  Weight: 54 kg

DRUGS (8)
  1. VEDOLIZUMAB [Suspect]
     Active Substance: VEDOLIZUMAB
     Indication: Colitis ulcerative
     Dosage: 300 MILLIGRAM
     Route: 042
     Dates: start: 20220611
  2. MESALAMINE [Concomitant]
     Active Substance: MESALAMINE
     Indication: Inflammatory bowel disease
     Dosage: UNK
     Dates: start: 20220427
  3. GANCICLOVIR [Concomitant]
     Active Substance: GANCICLOVIR
     Indication: Inflammatory bowel disease
     Dosage: 1 GRAM, TID
     Route: 048
     Dates: start: 20220613
  4. ZOPICLONE [Concomitant]
     Active Substance: ZOPICLONE
     Indication: Prophylaxis
     Dosage: 7.5 MILLIGRAM, QD
     Route: 048
     Dates: start: 20230324
  5. RABEPRAZOLE SODIUM [Concomitant]
     Active Substance: RABEPRAZOLE SODIUM
     Indication: Inflammatory bowel disease
     Dosage: 20 MILLIGRAM, BID
     Route: 048
     Dates: start: 20230403
  6. MESALAMINE [Concomitant]
     Active Substance: MESALAMINE
     Indication: Inflammatory bowel disease
     Dosage: 1 GRAM, QD
     Route: 054
     Dates: start: 20230403
  7. CALCIUM\VITAMIN D [Concomitant]
     Active Substance: CALCIUM\VITAMIN D
     Indication: Mineral supplementation
     Dosage: 0.3 GRAM, QD
     Route: 048
     Dates: start: 20230403
  8. PREDNISONE ACETATE [Concomitant]
     Active Substance: PREDNISONE ACETATE
     Indication: Inflammatory bowel disease
     Dosage: 30 MILLIGRAM, QD
     Route: 048
     Dates: start: 20230403

REACTIONS (2)
  - Haematochezia [Recovered/Resolved]
  - Medication error [Unknown]

NARRATIVE: CASE EVENT DATE: 20230316
